FAERS Safety Report 9331862 (Version 1)
Quarter: 2013Q2

REPORT INFORMATION
  Report Type: Spontaneous
  Country: US (occurrence: None)
  Receive Date: 20130603
  Receipt Date: 20130603
  Transmission Date: 20140414
  Serious: Yes (Hospitalization)
  Sender: FDA-Public Use
  Company Number: B0895539A

PATIENT
  Age: 27 Year
  Sex: Male

DRUGS (2)
  1. BUPROPION [Suspect]
     Indication: PRODUCT USED FOR UNKNOWN INDICATION
  2. METHYLPHENIDATE HCL [Concomitant]

REACTIONS (12)
  - Incorrect route of drug administration [None]
  - Chest pain [None]
  - Drug abuse [None]
  - Convulsion [None]
  - Anxiety [None]
  - Vision blurred [None]
  - Tachycardia [None]
  - Tremor [None]
  - Hallucination [None]
  - Urinary incontinence [None]
  - Hypertension [None]
  - Mental status changes [None]
